FAERS Safety Report 16134468 (Version 2)
Quarter: 2019Q2

REPORT INFORMATION
  Report Type: Spontaneous
  Country: JP (occurrence: JP)
  Receive Date: 20190329
  Receipt Date: 20190514
  Transmission Date: 20190711
  Serious: Yes (Hospitalization, Other)
  Sender: FDA-Public Use
  Company Number: JP-PFIZER INC-2019129060

PATIENT
  Age: 53 Year
  Sex: Female
  Weight: 44.5 kg

DRUGS (4)
  1. LUNESTA [Suspect]
     Active Substance: ESZOPICLONE
     Indication: INSOMNIA
     Dosage: 2 MG, 1X/DAY
     Route: 048
  2. LYRICA [Suspect]
     Active Substance: PREGABALIN
     Indication: NEURALGIA
     Dosage: 25 MG, 3X/DAY
     Route: 048
     Dates: start: 20170628, end: 20190313
  3. ANAFRANIL [Concomitant]
     Active Substance: CLOMIPRAMINE HYDROCHLORIDE
     Indication: DEPRESSION
     Dosage: 10 MG, 1X/DAY
     Route: 048
  4. TETRAMIDE [Concomitant]
     Active Substance: MIANSERIN
     Indication: DEPRESSION
     Dosage: 10 MG, 1X/DAY
     Route: 048

REACTIONS (2)
  - Loss of consciousness [Recovered/Resolved]
  - Epilepsy [Recovered/Resolved]

NARRATIVE: CASE EVENT DATE: 20190302
